FAERS Safety Report 9417640 (Version 1)
Quarter: 2013Q3

REPORT INFORMATION
  Report Type: Spontaneous
  Country: US (occurrence: US)
  Receive Date: 20130724
  Receipt Date: 20130724
  Transmission Date: 20140515
  Serious: No
  Sender: FDA-Public Use
  Company Number: US-BRISTOL-MYERS SQUIBB COMPANY-18964908

PATIENT
  Sex: Male

DRUGS (10)
  1. ELIQUIS [Suspect]
  2. PANTOPRAZOLE SODIUM [Concomitant]
  3. BYSTOLIC [Concomitant]
  4. RANEXA [Concomitant]
  5. ASPIRIN [Concomitant]
  6. VITAMIN D [Concomitant]
  7. FISH OIL [Concomitant]
  8. GLIMEPIRIDE [Concomitant]
  9. MULTIVITAMIN [Concomitant]
  10. ALTACE [Concomitant]

REACTIONS (2)
  - Abdominal pain upper [Unknown]
  - Flatulence [Unknown]
